FAERS Safety Report 25520025 (Version 1)
Quarter: 2025Q3

REPORT INFORMATION
  Report Type: Spontaneous
  Country: US (occurrence: US)
  Receive Date: 20250704
  Receipt Date: 20250704
  Transmission Date: 20251021
  Serious: No
  Sender: SANOFI AVENTIS
  Company Number: US-SA-2025SA188998

PATIENT
  Age: 21 Year
  Sex: Female

DRUGS (10)
  1. DUPIXENT [Suspect]
     Active Substance: DUPILUMAB
     Indication: Dermatitis allergic
     Dosage: 300 MG, QOW
     Route: 058
     Dates: start: 20220826
  2. BUSPIRONE [Concomitant]
     Active Substance: BUSPIRONE HYDROCHLORIDE
  3. ESCITALOPRAM [Concomitant]
     Active Substance: ESCITALOPRAM OXALATE
  4. EUCRISA [Concomitant]
     Active Substance: CRISABOROLE
  5. FLUOXETINE [Concomitant]
     Active Substance: FLUOXETINE HYDROCHLORIDE
  6. MISOPROSTOL [Concomitant]
     Active Substance: MISOPROSTOL
  7. MOMETASONE [Concomitant]
     Active Substance: MOMETASONE
  8. NAPROXEN [Concomitant]
     Active Substance: NAPROXEN
  9. PIMECROLIMUS [Concomitant]
     Active Substance: PIMECROLIMUS
  10. PROPRANOLOL [Concomitant]
     Active Substance: PROPRANOLOL HYDROCHLORIDE

REACTIONS (6)
  - Discomfort [Unknown]
  - Sleep disorder due to a general medical condition [Unknown]
  - Memory impairment [Unknown]
  - Rash [Unknown]
  - Dermatitis allergic [Unknown]
  - Condition aggravated [Unknown]
